FAERS Safety Report 4519923-8 (Version None)
Quarter: 2004Q4

REPORT INFORMATION
  Report Type: 
  Country: None (occurrence: None)
  Receive Date: 20041202
  Receipt Date: 20041202
  Transmission Date: 20050328
  Serious: Yes (Hospitalization)
  Sender: FDA-Public Use
  Company Number: None

PATIENT
  Age: 74 Year
  Sex: Female
  Weight: 63.2 kg

DRUGS (2)
  1. HYDROCHLOROTHIAZIDE [Suspect]
     Indication: HYPERTENSION
     Dosage: 25MG   DAILY   ORAL
     Route: 048
  2. CARBAMAZEPINE [Suspect]
     Indication: TRIGEMINAL NEURALGIA
     Dosage: 200MG   QID  ORAL
     Route: 048

REACTIONS (10)
  - ABDOMINAL PAIN UPPER [None]
  - BACK PAIN [None]
  - DIFFICULTY IN WALKING [None]
  - DIZZINESS [None]
  - ELECTROLYTE IMBALANCE [None]
  - FEELING ABNORMAL [None]
  - HYPONATRAEMIA [None]
  - NAUSEA [None]
  - PYELONEPHRITIS [None]
  - TREMOR [None]
